FAERS Safety Report 21493111 (Version 1)
Quarter: 2022Q4

REPORT INFORMATION
  Report Type: Report from Study
  Country: US (occurrence: None)
  Receive Date: 20221021
  Receipt Date: 20221021
  Transmission Date: 20230112
  Serious: Yes (Other)
  Sender: FDA-Public Use
  Company Number: US-Merck Healthcare KGaA-9342578

PATIENT
  Age: 67 Year
  Sex: Female

DRUGS (5)
  1. MAVENCLAD [Suspect]
     Active Substance: CLADRIBINE
     Indication: Relapsing-remitting multiple sclerosis
     Dosage: YEAR ONE MONTH ONE THERAPY
     Route: 048
     Dates: start: 20210419, end: 20210423
  2. MAVENCLAD [Suspect]
     Active Substance: CLADRIBINE
     Dosage: YEAR ONE MONTH TWO THERAPY
     Route: 048
     Dates: end: 20210521
  3. MAVENCLAD [Suspect]
     Active Substance: CLADRIBINE
     Dosage: YEAR TWO MONTH ONE THERAPY.
     Route: 048
     Dates: start: 20220523
  4. MAVENCLAD [Suspect]
     Active Substance: CLADRIBINE
     Dosage: YEAR TWO MONTH TWO THERAPY.
     Route: 048
     Dates: end: 20220623
  5. TRAMADOL [Concomitant]
     Active Substance: TRAMADOL
     Indication: Product used for unknown indication

REACTIONS (22)
  - White blood cell count decreased [Unknown]
  - Lymphocyte count decreased [Unknown]
  - Blood creatine increased [Unknown]
  - Platelet count decreased [Unknown]
  - Epstein-Barr virus test positive [Unknown]
  - Dyspnoea [Unknown]
  - Fatigue [Not Recovered/Not Resolved]
  - Asthenia [Not Recovered/Not Resolved]
  - Fall [Unknown]
  - Contusion [Unknown]
  - Arthralgia [Unknown]
  - Balance disorder [Unknown]
  - Musculoskeletal chest pain [Unknown]
  - Muscular weakness [Unknown]
  - Gait disturbance [Unknown]
  - Productive cough [Unknown]
  - Nasal congestion [Unknown]
  - Pain [Unknown]
  - Peroneal nerve palsy [Unknown]
  - Swelling [Unknown]
  - Frustration tolerance decreased [Unknown]
  - Headache [Unknown]

NARRATIVE: CASE EVENT DATE: 20220913
